FAERS Safety Report 6024251-8 (Version None)
Quarter: 2008Q4

REPORT INFORMATION
  Report Type: 
  Country: None (occurrence: None)
  Receive Date: 20081222
  Receipt Date: 20081027
  Transmission Date: 20090506
  Serious: No
  Sender: FDA-Public Use
  Company Number: SPV1-2008-02337

PATIENT
  Age: 7 Year
  Sex: Male
  Weight: 24.5 kg

DRUGS (4)
  1. VYVANSE [Suspect]
     Indication: ATTENTION DEFICIT/HYPERACTIVITY DISORDER
     Dosage: HALF 30MG CAPSULE, 1X/DAY:QD, ORAL ; 30 MG, 1X/DAY:QD, ORAL ; HALF 30MG CAPSULE, 1X/DAY:QD, ORAL
     Route: 048
     Dates: start: 20081018, end: 20081024
  2. VYVANSE [Suspect]
     Indication: ATTENTION DEFICIT/HYPERACTIVITY DISORDER
     Dosage: HALF 30MG CAPSULE, 1X/DAY:QD, ORAL ; 30 MG, 1X/DAY:QD, ORAL ; HALF 30MG CAPSULE, 1X/DAY:QD, ORAL
     Route: 048
     Dates: start: 20081025, end: 20081025
  3. VYVANSE [Suspect]
     Indication: ATTENTION DEFICIT/HYPERACTIVITY DISORDER
     Dosage: HALF 30MG CAPSULE, 1X/DAY:QD, ORAL ; 30 MG, 1X/DAY:QD, ORAL ; HALF 30MG CAPSULE, 1X/DAY:QD, ORAL
     Route: 048
     Dates: start: 20081027
  4. FLUORIDE /00168201/ (SODIUM FLUORIDE) [Concomitant]

REACTIONS (2)
  - DRUG PRESCRIBING ERROR [None]
  - IRRITABILITY [None]
